FAERS Safety Report 18757746 (Version 1)
Quarter: 2021Q1

REPORT INFORMATION
  Report Type: Spontaneous
  Country: US (occurrence: US)
  Receive Date: 20210119
  Receipt Date: 20210119
  Transmission Date: 20210419
  Serious: Yes (Other)
  Sender: FDA-Public Use
  Company Number: US-PFIZER INC-2020502712

PATIENT
  Age: 66 Year
  Sex: Female

DRUGS (1)
  1. BRAFTOVI [Suspect]
     Active Substance: ENCORAFENIB
     Dosage: UNK

REACTIONS (5)
  - Second primary malignancy [Unknown]
  - Poor quality product administered [Unknown]
  - Product physical issue [Unknown]
  - Neoplasm malignant [Unknown]
  - COVID-19 [Unknown]
